FAERS Safety Report 10170122 (Version 1)
Quarter: 2014Q2

REPORT INFORMATION
  Report Type: Spontaneous
  Country: FR (occurrence: FR)
  Receive Date: 20140513
  Receipt Date: 20140513
  Transmission Date: 20141212
  Serious: Yes (Hospitalization)
  Sender: FDA-Public Use
  Company Number: FR-GLAXOSMITHKLINE-B0991285A

PATIENT
  Age: 35 Year
  Sex: Female

DRUGS (9)
  1. SERETIDE [Suspect]
     Indication: PRODUCT USED FOR UNKNOWN INDICATION
     Dosage: 250MCG TWICE PER DAY
     Route: 055
     Dates: start: 201402, end: 201402
  2. BECLOMETHASONE [Suspect]
     Indication: PRODUCT USED FOR UNKNOWN INDICATION
     Dosage: 400MCG TWICE PER DAY
     Route: 055
     Dates: start: 201403, end: 201403
  3. CORTANCYL [Concomitant]
     Dosage: 5MG UNKNOWN
     Route: 065
  4. METHOTREXATE [Concomitant]
     Route: 065
  5. SPECIAFOLDINE [Concomitant]
     Dosage: 5MG UNKNOWN
     Route: 065
  6. ORENCIA [Concomitant]
     Route: 065
  7. LEVOTHYROX [Concomitant]
     Dosage: 100MCG UNKNOWN
     Route: 065
  8. HYDROCORTISONE [Concomitant]
     Route: 065
  9. INEXIUM [Concomitant]
     Dosage: 40MG UNKNOWN
     Route: 065

REACTIONS (1)
  - Myalgia [Recovered/Resolved]
